FAERS Safety Report 15005125 (Version 2)
Quarter: 2018Q2

REPORT INFORMATION
  Report Type: Spontaneous
  Country: FR (occurrence: FR)
  Receive Date: 20180613
  Receipt Date: 20180620
  Transmission Date: 20180711
  Serious: Yes (Disabling, Other)
  Sender: FDA-Public Use
  Company Number: FR-GLAXOSMITHKLINE-FR2018099902

PATIENT
  Age: 74 Year
  Sex: Male
  Weight: 54 kg

DRUGS (2)
  1. LAMOTRIGINE. [Suspect]
     Active Substance: LAMOTRIGINE
     Indication: DEPRESSION
     Dosage: 175 MG/DAY THEN REDUCTION OF THE DOSE FROM 04/05/2018
     Route: 048
     Dates: start: 20180329
  2. VENLAFAXINE [Suspect]
     Active Substance: VENLAFAXINE HYDROCHLORIDE
     Indication: DEPRESSION
     Dosage: 225 MG, QD
     Route: 048
     Dates: start: 20180329

REACTIONS (2)
  - Disturbance in attention [Recovered/Resolved]
  - Cataplexy [Recovered/Resolved]

NARRATIVE: CASE EVENT DATE: 20180413
